FAERS Safety Report 4781146-5 (Version None)
Quarter: 2005Q3

REPORT INFORMATION
  Report Type: 
  Country: None (occurrence: None)
  Receive Date: 20050926
  Receipt Date: 20050914
  Transmission Date: 20060218
  Serious: Yes (Hospitalization)
  Sender: FDA-Public Use
  Company Number: 2005128304

PATIENT
  Age: 63 Year
  Sex: Male

DRUGS (4)
  1. LYRICA [Suspect]
     Indication: PAIN IN EXTREMITY
     Dosage: 300 MG (75 MG, 4 IN 1 D), ORAL
     Route: 048
     Dates: start: 20050611, end: 20050613
  2. SIMVASTATIN [Concomitant]
  3. TENORMIN (AENOLOL) [Concomitant]
  4. ASPIRIN [Concomitant]

REACTIONS (4)
  - ATHEROSCLEROSIS [None]
  - CORONARY ARTERY STENOSIS [None]
  - MYOCARDIAL INFARCTION [None]
  - VENTRICULAR DYSFUNCTION [None]
